FAERS Safety Report 6080302-6 (Version None)
Quarter: 2009Q1

REPORT INFORMATION
  Report Type: 
  Country: None (occurrence: None)
  Receive Date: 20090217
  Receipt Date: 20090207
  Transmission Date: 20090719
  Serious: Yes (Other)
  Sender: FDA-Public Use
  Company Number: DE-TEVA-178702ISR

PATIENT
  Age: 66 Year
  Sex: Female

DRUGS (2)
  1. ETOPOSIDE [Suspect]
     Indication: NON-SMALL CELL LUNG CANCER
     Dosage: 175 MG, LATER 125 MG
     Dates: end: 20080501
  2. CARBOPLATIN [Suspect]
     Indication: NON-SMALL CELL LUNG CANCER
     Dosage: 525MG, LATER 475 MG
     Dates: end: 20080501

REACTIONS (4)
  - APHASIA [None]
  - ATAXIA [None]
  - HYPERTONIA [None]
  - HYPOTONIA [None]
